FAERS Safety Report 8020632-1 (Version None)
Quarter: 2012Q1

REPORT INFORMATION
  Report Type: 
  Country: None (occurrence: None)
  Receive Date: 20120103
  Receipt Date: 20111227
  Transmission Date: 20120608
  Serious: Yes (Hospitalization, Other)
  Sender: FDA-Public Use
  Company Number: JP-ASTRAZENECA-2011SE75014

PATIENT
  Age: 17454 Day
  Sex: Female
  Weight: 82.3 kg

DRUGS (12)
  1. NITRAZEPAM [Concomitant]
     Route: 048
  2. HALCION [Concomitant]
     Route: 048
  3. DEPAKENE [Concomitant]
     Indication: BORDERLINE PERSONALITY DISORDER
     Route: 048
     Dates: end: 20111206
  4. PROTEASE INHIBITORS [Concomitant]
  5. PHENOBARBITAL TAB [Concomitant]
     Indication: BORDERLINE PERSONALITY DISORDER
     Route: 048
  6. CLEAMINE [Concomitant]
     Dates: end: 20111205
  7. CALAMINE [Concomitant]
  8. SEROQUEL [Suspect]
     Indication: BORDERLINE PERSONALITY DISORDER
     Route: 048
     Dates: end: 20111206
  9. LEXOTAN [Concomitant]
     Indication: BORDERLINE PERSONALITY DISORDER
     Route: 048
  10. RABEPRAZOLE SODIUM [Concomitant]
     Route: 048
  11. DIAZEPAM [Concomitant]
     Indication: BORDERLINE PERSONALITY DISORDER
     Route: 048
  12. SELBEX [Concomitant]
     Route: 048

REACTIONS (3)
  - DIABETIC KETOACIDOSIS [None]
  - OFF LABEL USE [None]
  - PANCREATITIS ACUTE [None]
